FAERS Safety Report 24608449 (Version 1)
Quarter: 2024Q4

REPORT INFORMATION
  Report Type: Other
  Country: KR (occurrence: KR)
  Receive Date: 20241112
  Receipt Date: 20241112
  Transmission Date: 20250115
  Serious: Yes (Hospitalization, Disabling, Other)
  Sender: B BRAUN
  Company Number: KR-B.Braun Medical Inc.-2164910

PATIENT
  Age: 40 Year
  Sex: Male

DRUGS (4)
  1. LIDOCAINE HYDROCHLORIDE [Suspect]
     Active Substance: LIDOCAINE HYDROCHLORIDE
     Indication: Back pain
  2. SODIUM CHLORIDE [Suspect]
     Active Substance: SODIUM CHLORIDE
  3. TRIAMCINOLONE [Suspect]
     Active Substance: TRIAMCINOLONE
  4. DEXAMETHASONE [Suspect]
     Active Substance: DEXAMETHASONE

REACTIONS (3)
  - Spinal cord infarction [Not Recovered/Not Resolved]
  - Off label use [Not Recovered/Not Resolved]
  - Cauda equina syndrome [Not Recovered/Not Resolved]
